FAERS Safety Report 25007105 (Version 2)
Quarter: 2025Q1

REPORT INFORMATION
  Report Type: Report from Study
  Country: DE (occurrence: DE)
  Receive Date: 20250225
  Receipt Date: 20250318
  Transmission Date: 20250409
  Serious: Yes (Other)
  Sender: UCB
  Company Number: DE-UCBSA-2025010457

PATIENT
  Sex: Male
  Weight: 78 kg

DRUGS (4)
  1. BIMEKIZUMAB [Suspect]
     Active Substance: BIMEKIZUMAB
     Indication: Psoriasis
     Dosage: 320 MILLIGRAM, EV 4 WEEKS FOR 16 WEEKS, THEN EVERY 8 WEEKS
     Route: 058
     Dates: start: 20230106
  2. BIMEKIZUMAB [Suspect]
     Active Substance: BIMEKIZUMAB
     Dosage: 320 MILLIGRAM, EV 4 WEEKS FOR 16 WEEKS, THEN EVERY 8 WEEKS
     Route: 058
     Dates: start: 2023, end: 20241211
  3. CLOBEX [Concomitant]
     Active Substance: CLOBETASOL PROPIONATE
     Indication: Psoriasis
     Route: 061
     Dates: start: 202305
  4. ENSTILAR [BETAMETHASONE DIPROPIONATE;CALCIPOTRIOL MONOHYDRATE] [Concomitant]
     Indication: Psoriasis
     Dosage: AEROSOL, FOAM, ONCE DAILY (QD)
     Route: 061
     Dates: start: 202305

REACTIONS (5)
  - Crohn^s disease [Not Recovered/Not Resolved]
  - Upper respiratory tract infection [Recovered/Resolved]
  - Oral candidiasis [Recovered/Resolved]
  - Injection site pain [Recovered/Resolved]
  - Diarrhoea [Recovered/Resolved]

NARRATIVE: CASE EVENT DATE: 20230101
